FAERS Safety Report 13013369 (Version 1)
Quarter: 2016Q4

REPORT INFORMATION
  Report Type: Report from Study
  Country: US (occurrence: US)
  Receive Date: 20161209
  Receipt Date: 20161209
  Transmission Date: 20170207
  Serious: Yes (Hospitalization)
  Sender: FDA-Public Use
  Company Number: US-MALLINCKRODT-T201606264

PATIENT
  Sex: Female

DRUGS (2)
  1. ENBREL [Concomitant]
     Active Substance: ETANERCEPT
  2. REPOSITORY CORTICOTROPIN INJECTION [Suspect]
     Active Substance: CORTICOTROPIN
     Indication: ANKYLOSING SPONDYLITIS
     Dosage: 80 UNITS / 1 ML, 2 TIMES PER WEEK, 2 TIMES PER WEEK
     Route: 058
     Dates: start: 20150720

REACTIONS (3)
  - Weight increased [Not Recovered/Not Resolved]
  - Intestinal obstruction [Recovering/Resolving]
  - Dermatitis infected [Not Recovered/Not Resolved]
